FAERS Safety Report 10247987 (Version 2)
Quarter: 2014Q2

REPORT INFORMATION
  Report Type: Spontaneous
  Country: FR (occurrence: FR)
  Receive Date: 20140619
  Receipt Date: 20140619
  Transmission Date: 20141212
  Serious: Yes (Death, Other)
  Sender: FDA-Public Use
  Company Number: FR-BAXTER-2014BAX021298

PATIENT
  Age: 68 Year
  Sex: Male

DRUGS (5)
  1. ENDOXAN 1000 MG, POUDRE POUR SOLUTION INJECTABLE [Suspect]
     Indication: NON-HODGKIN^S LYMPHOMA RECURRENT
     Route: 065
  2. RITUXIMAB [Suspect]
     Indication: NON-HODGKIN^S LYMPHOMA RECURRENT
     Route: 065
  3. HYDROXYDAUNORUBICIN [Suspect]
     Indication: NON-HODGKIN^S LYMPHOMA RECURRENT
     Route: 065
  4. ONCOVIN [Suspect]
     Indication: NON-HODGKIN^S LYMPHOMA RECURRENT
     Route: 065
  5. PREDNISONE [Suspect]
     Indication: NON-HODGKIN^S LYMPHOMA RECURRENT
     Route: 065

REACTIONS (3)
  - Febrile neutropenia [Unknown]
  - Fungal skin infection [Not Recovered/Not Resolved]
  - B-cell lymphoma [Fatal]
